FAERS Safety Report 16283080 (Version 2)
Quarter: 2021Q1

REPORT INFORMATION
  Report Type: Spontaneous
  Country: US (occurrence: US)
  Receive Date: 20190507
  Receipt Date: 20210216
  Transmission Date: 20210419
  Serious: Yes (Death, Other)
  Sender: FDA-Public Use
  Company Number: US-ASTRAZENECA-2019SE60760

PATIENT
  Age: 62 Year
  Sex: Male
  Weight: 106.1 kg

DRUGS (47)
  1. NEXIUM [Suspect]
     Active Substance: ESOMEPRAZOLE MAGNESIUM
     Indication: DYSPEPSIA
     Route: 048
     Dates: start: 2001, end: 2008
  2. PREVACID 24 HR [Suspect]
     Active Substance: LANSOPRAZOLE
     Indication: DYSPEPSIA
     Route: 065
     Dates: start: 2009, end: 2011
  3. ARANESP [Concomitant]
     Active Substance: DARBEPOETIN ALFA
  4. HECTOROL [Concomitant]
     Active Substance: DOXERCALCIFEROL
  5. PREVACID 24 HR [Suspect]
     Active Substance: LANSOPRAZOLE
     Indication: DYSPEPSIA
     Route: 065
     Dates: start: 200905, end: 2011
  6. GLIPIZIDE. [Concomitant]
     Active Substance: GLIPIZIDE
  7. ULORIC [Concomitant]
     Active Substance: FEBUXOSTAT
  8. SENNA [Concomitant]
     Active Substance: SENNA LEAF\SENNOSIDES\SENNOSIDES A AND B
  9. LEVEMIR [Concomitant]
     Active Substance: INSULIN DETEMIR
  10. PRILOSEC [Suspect]
     Active Substance: OMEPRAZOLE MAGNESIUM
     Indication: DYSPEPSIA
     Dosage: 20.0MG UNKNOWN
     Route: 048
  11. PREVACID [Suspect]
     Active Substance: LANSOPRAZOLE
     Indication: DYSPEPSIA
     Route: 065
     Dates: start: 200902, end: 201110
  12. PREVACID IV [Suspect]
     Active Substance: LANSOPRAZOLE
     Indication: DYSPEPSIA
     Route: 065
     Dates: start: 200909, end: 201110
  13. DIGOXIN. [Concomitant]
     Active Substance: DIGOXIN
  14. NEXIUM [Suspect]
     Active Substance: ESOMEPRAZOLE MAGNESIUM
     Indication: DYSPEPSIA
     Route: 048
     Dates: start: 200902, end: 201110
  15. PRILOSEC [Suspect]
     Active Substance: OMEPRAZOLE MAGNESIUM
     Indication: DYSPEPSIA
     Route: 048
     Dates: start: 1998, end: 2011
  16. PREVACID IV [Suspect]
     Active Substance: LANSOPRAZOLE
     Indication: DYSPEPSIA
     Route: 065
     Dates: start: 2008, end: 2011
  17. LACTULOSE. [Concomitant]
     Active Substance: LACTULOSE
  18. LYRICA [Concomitant]
     Active Substance: PREGABALIN
  19. NEXIUM [Suspect]
     Active Substance: ESOMEPRAZOLE MAGNESIUM
     Indication: DYSPEPSIA
     Route: 048
     Dates: start: 1998, end: 2008
  20. NEXIUM I.V. [Suspect]
     Active Substance: ESOMEPRAZOLE SODIUM
     Indication: DYSPEPSIA
     Route: 042
     Dates: start: 200902, end: 201110
  21. NEXIUM I.V. [Suspect]
     Active Substance: ESOMEPRAZOLE SODIUM
     Indication: DYSPEPSIA
     Route: 042
     Dates: start: 2008, end: 2011
  22. PRILOSEC OTC [Suspect]
     Active Substance: OMEPRAZOLE MAGNESIUM
     Indication: DYSPEPSIA
     Route: 048
     Dates: start: 2008, end: 2011
  23. PEPCID OTC [Concomitant]
     Active Substance: FAMOTIDINE
     Dates: start: 2008, end: 2013
  24. COMBIVENT [Concomitant]
     Active Substance: ALBUTEROL SULFATE\IPRATROPIUM BROMIDE
  25. LASIX [Concomitant]
     Active Substance: FUROSEMIDE
  26. PRILOSEC [Suspect]
     Active Substance: OMEPRAZOLE MAGNESIUM
     Indication: DYSPEPSIA
     Route: 048
     Dates: start: 200902, end: 201110
  27. PRILOSEC [Suspect]
     Active Substance: OMEPRAZOLE MAGNESIUM
     Indication: DYSPEPSIA
     Route: 048
     Dates: start: 1998, end: 2011
  28. PREVACID [Suspect]
     Active Substance: LANSOPRAZOLE
     Indication: DYSPEPSIA
     Route: 065
     Dates: start: 1998, end: 2009
  29. ZETIA [Concomitant]
     Active Substance: EZETIMIBE
  30. NOVOLOG [Concomitant]
     Active Substance: INSULIN ASPART
  31. PRILOSEC [Suspect]
     Active Substance: OMEPRAZOLE MAGNESIUM
     Indication: DYSPEPSIA
     Route: 048
     Dates: start: 2008, end: 20110511
  32. PRILOSEC [Suspect]
     Active Substance: OMEPRAZOLE MAGNESIUM
     Indication: DYSPEPSIA
     Dosage: 40.0MG UNKNOWN
     Route: 048
  33. PRILOSEC OTC [Suspect]
     Active Substance: OMEPRAZOLE MAGNESIUM
     Indication: DYSPEPSIA
     Route: 048
     Dates: start: 2003, end: 2011
  34. PREVACID 24 HR [Suspect]
     Active Substance: LANSOPRAZOLE
     Indication: DYSPEPSIA
     Route: 065
     Dates: start: 200902, end: 201110
  35. MIRALAX [Concomitant]
     Active Substance: POLYETHYLENE GLYCOL 3350
     Indication: CONSTIPATION
     Dates: start: 2011
  36. ZANTAC [Concomitant]
     Active Substance: RANITIDINE HYDROCHLORIDE
     Dates: start: 2008, end: 2013
  37. FERREX [Concomitant]
     Active Substance: FERRIC POLYSACCHARIDE COMPLEX
  38. CADUET [Concomitant]
     Active Substance: AMLODIPINE BESYLATE\ATORVASTATIN CALCIUM
  39. LANTUS [Concomitant]
     Active Substance: INSULIN GLARGINE
  40. CHOLECALCIFEROL [Concomitant]
     Active Substance: CHOLECALCIFEROL
  41. IMDUR [Concomitant]
     Active Substance: ISOSORBIDE MONONITRATE
  42. FLOMAX [Concomitant]
     Active Substance: TAMSULOSIN HYDROCHLORIDE
  43. LIPITOR [Concomitant]
     Active Substance: ATORVASTATIN CALCIUM
  44. PREVACID [Suspect]
     Active Substance: LANSOPRAZOLE
     Indication: DYSPEPSIA
     Route: 065
     Dates: start: 1998, end: 200905
  45. ASPIRIN. [Concomitant]
     Active Substance: ASPIRIN
     Indication: ANTICOAGULANT THERAPY
     Dates: start: 1990, end: 2010
  46. COREG [Concomitant]
     Active Substance: CARVEDILOL
  47. ZEMPLAR [Concomitant]
     Active Substance: PARICALCITOL

REACTIONS (8)
  - Cardiac failure congestive [Fatal]
  - Renal failure [Unknown]
  - Diabetes mellitus [Fatal]
  - End stage renal disease [Unknown]
  - Hypertension [Fatal]
  - Acute kidney injury [Unknown]
  - Chronic kidney disease [Fatal]
  - Nephrogenic anaemia [Unknown]

NARRATIVE: CASE EVENT DATE: 2009
